FAERS Safety Report 24046476 (Version 7)
Quarter: 2025Q2

REPORT INFORMATION
  Report Type: Spontaneous
  Country: US (occurrence: US)
  Receive Date: 20240703
  Receipt Date: 20250513
  Transmission Date: 20250716
  Serious: Yes (Hospitalization)
  Sender: SANOFI AVENTIS
  Company Number: US-SA-SAC20240626001141

PATIENT
  Age: 33 Year
  Sex: Female

DRUGS (7)
  1. DUPIXENT [Suspect]
     Active Substance: DUPILUMAB
     Indication: Asthma
     Route: 058
     Dates: start: 20240615, end: 20240615
  2. DUPIXENT [Suspect]
     Active Substance: DUPILUMAB
     Indication: Nasal polyps
     Dosage: 300 MG, QOW
     Route: 058
     Dates: start: 202406, end: 202412
  3. DUPIXENT [Suspect]
     Active Substance: DUPILUMAB
     Indication: Eosinophilic granulomatosis with polyangiitis
     Dosage: 300 MG, QOW
     Route: 058
     Dates: start: 20250201, end: 202504
  4. FASENRA [Concomitant]
     Active Substance: BENRALIZUMAB
  5. NUCALA [Concomitant]
     Active Substance: MEPOLIZUMAB
  6. ALBUTEROL [Concomitant]
     Active Substance: ALBUTEROL
  7. DUONEB [Concomitant]
     Active Substance: ALBUTEROL SULFATE\IPRATROPIUM BROMIDE

REACTIONS (21)
  - Hospitalisation [Unknown]
  - Nausea [Recovered/Resolved]
  - Cold sweat [Unknown]
  - Feeling hot [Unknown]
  - Malaise [Unknown]
  - Fatigue [Unknown]
  - COVID-19 [Unknown]
  - Dyspnoea [Not Recovered/Not Resolved]
  - Wheezing [Unknown]
  - Chills [Unknown]
  - Nasal congestion [Unknown]
  - Pain [Unknown]
  - Cough [Unknown]
  - Secretion discharge [Unknown]
  - Viral infection [Unknown]
  - Dizziness [Not Recovered/Not Resolved]
  - Asthma [Not Recovered/Not Resolved]
  - Drug ineffective [Unknown]
  - Rash [Recovered/Resolved]
  - Skin discolouration [Recovered/Resolved]
  - Product use in unapproved indication [Unknown]

NARRATIVE: CASE EVENT DATE: 20240101
